FAERS Safety Report 25663492 (Version 2)
Quarter: 2025Q4

REPORT INFORMATION
  Report Type: Spontaneous
  Country: US (occurrence: US)
  Receive Date: 20250811
  Receipt Date: 20251020
  Transmission Date: 20260118
  Serious: Yes (Hospitalization, Other)
  Sender: SANOFI AVENTIS
  Company Number: US-SANOFI-02610238

PATIENT
  Age: 76 Year
  Sex: Female

DRUGS (1)
  1. TOUJEO [Suspect]
     Active Substance: INSULIN GLARGINE
     Indication: Diabetes mellitus
     Dosage: UNK

REACTIONS (4)
  - Diverticulitis intestinal perforated [Recovered/Resolved]
  - B-cell lymphoma [Recovered/Resolved]
  - Injection site bruising [Recovered/Resolved]
  - Endodontic procedure [Recovered/Resolved]

NARRATIVE: CASE EVENT DATE: 20250301
